FAERS Safety Report 5987571-9 (Version None)
Quarter: 2008Q4

REPORT INFORMATION
  Report Type: 
  Country: None (occurrence: None)
  Receive Date: 20081209
  Receipt Date: 20081128
  Transmission Date: 20090506
  Serious: Yes (Hospitalization)
  Sender: FDA-Public Use
  Company Number: ES-ROCHE-600026

PATIENT
  Sex: Male

DRUGS (2)
  1. PEG-INTERFERON ALFA 2A (RO 25-8310) [Suspect]
     Dosage: LAST DOSE PRIOR TO SAE : 13 JULY 2005 DOSAGE FORM REPORTED AS INJECTION.
     Route: 058
     Dates: start: 20040605
  2. RIBAVIRIN [Suspect]
     Dosage: LAST DOSE PRIOR TO SAE: 13 JULY 2005, DOSAGE FORM REPORTED AS PILLS
     Route: 048
     Dates: start: 20040605

REACTIONS (1)
  - PERICARDITIS [None]
